FAERS Safety Report 24161036 (Version 1)
Quarter: 2024Q3

REPORT INFORMATION
  Report Type: Spontaneous
  Country: US (occurrence: US)
  Receive Date: 20240801
  Receipt Date: 20240801
  Transmission Date: 20241016
  Serious: No
  Sender: ROCHE
  Company Number: US-ROCHE-10000041384

PATIENT
  Sex: Female
  Weight: 43.09 kg

DRUGS (6)
  1. PERJETA [Suspect]
     Active Substance: PERTUZUMAB
     Indication: Breast cancer metastatic
     Route: 042
     Dates: start: 202403
  2. HERCEPTIN [Suspect]
     Active Substance: TRASTUZUMAB
     Indication: Breast cancer metastatic
     Route: 042
     Dates: start: 202403
  3. AMITRIPTYLINE [Concomitant]
     Active Substance: AMITRIPTYLINE
     Indication: Neuralgia
  4. NALTREXONE [Concomitant]
     Active Substance: NALTREXONE
     Indication: Inflammation
  5. COZAAR [Concomitant]
     Active Substance: LOSARTAN POTASSIUM
  6. LETROZOLE [Concomitant]
     Active Substance: LETROZOLE

REACTIONS (2)
  - Muscle spasms [Not Recovered/Not Resolved]
  - Pruritus [Unknown]
